FAERS Safety Report 8789014 (Version 1)
Quarter: 2012Q4

REPORT INFORMATION
  Report Type: 
  Country: US (occurrence: US)
  Receive Date: 20120916
  Receipt Date: 20120916
  Transmission Date: 20130627
  Serious: Yes (Hospitalization)
  Sender: FDA-Public Use
  Company Number: US-MERCK-1209USA003705

PATIENT

DRUGS (3)
  1. ISENTRESS [Suspect]
     Dosage: 400 mg, bid
     Route: 048
  2. GLIVEC [Suspect]
     Dosage: 400 mg, qd
     Route: 048
  3. KIVEXA [Suspect]
     Dosage: 1 DF, qd
     Route: 048

REACTIONS (6)
  - Hepatocellular injury [Unknown]
  - Pyrexia [Unknown]
  - Neutropenia [Unknown]
  - Eosinophilia [Unknown]
  - Dermatitis exfoliative [Unknown]
  - Cholestasis [Unknown]
